FAERS Safety Report 13694818 (Version 1)
Quarter: 2017Q2

REPORT INFORMATION
  Report Type: Spontaneous
  Country: ZA (occurrence: ZA)
  Receive Date: 20170627
  Receipt Date: 20170627
  Transmission Date: 20170830
  Serious: Yes (Other)
  Sender: FDA-Public Use
  Company Number: ZA-PFIZER INC-2017278317

PATIENT
  Age: 78 Year
  Sex: Female

DRUGS (6)
  1. FEXO [Concomitant]
     Indication: HYPERSENSITIVITY
     Dosage: 180 MG, UNK
     Route: 048
  2. PHARMAPRESS CO [Concomitant]
     Indication: HYPERTENSION
     Dosage: 20/12.5 MG, UNK
     Route: 048
  3. CYMGEN [Concomitant]
     Active Substance: DULOXETINE HYDROCHLORIDE
     Indication: DEPRESSION
     Dosage: 60 MG, UNK
     Route: 048
  4. CELEBREX [Suspect]
     Active Substance: CELECOXIB
     Indication: INFLAMMATION
     Dosage: 200 MG, UNK
     Route: 048
     Dates: start: 20170427, end: 2017
  5. EUTHYROX [Concomitant]
     Active Substance: LEVOTHYROXINE SODIUM
     Indication: THYROID DISORDER
     Dosage: 100 UG, UNK
     Route: 048
  6. ADCO-SIMVASTATIN [Concomitant]
     Active Substance: SIMVASTATIN
     Indication: BLOOD CHOLESTEROL
     Dosage: 10 MG, UNK
     Route: 048

REACTIONS (1)
  - Gastric haemorrhage [Unknown]

NARRATIVE: CASE EVENT DATE: 2017
